FAERS Safety Report 8531505-X (Version None)
Quarter: 2012Q3

REPORT INFORMATION
  Report Type: 
  Country: None (occurrence: None)
  Receive Date: 20120723
  Receipt Date: 20120717
  Transmission Date: 20120928
  Serious: Yes (Life-Threatening, Other)
  Sender: FDA-Public Use
  Company Number: US-ASTRAZENECA-2012SE26087

PATIENT
  Age: 43 Year
  Sex: Female

DRUGS (1)
  1. SEROQUEL XR [Suspect]
     Route: 048

REACTIONS (8)
  - DEPRESSED LEVEL OF CONSCIOUSNESS [None]
  - FRUSTRATION [None]
  - ANGER [None]
  - IRRITABILITY [None]
  - APPARENT DEATH [None]
  - DRUG DOSE OMISSION [None]
  - BIPOLAR DISORDER [None]
  - MALAISE [None]
